FAERS Safety Report 19702794 (Version 3)
Quarter: 2021Q3

REPORT INFORMATION
  Report Type: Spontaneous
  Country: JP (occurrence: JP)
  Receive Date: 20210816
  Receipt Date: 20210930
  Transmission Date: 20211014
  Serious: Yes (Hospitalization, Other)
  Sender: FDA-Public Use
  Company Number: JP-SAKK-2021SA267210AA

PATIENT
  Age: 69 Year
  Sex: Male
  Weight: 74 kg

DRUGS (6)
  1. PREDONINE [Concomitant]
     Active Substance: PREDNISOLONE
     Indication: CHRONIC EOSINOPHILIC RHINOSINUSITIS
     Dosage: 2 DF, QD
     Route: 048
     Dates: start: 20100804
  2. ALENDRONATE [Concomitant]
     Active Substance: ALENDRONATE SODIUM
     Indication: PROPHYLAXIS
     Dosage: 1 DF, QW
     Route: 048
     Dates: start: 20200221
  3. SYMBICORT [Concomitant]
     Active Substance: BUDESONIDE\FORMOTEROL FUMARATE DIHYDRATE
     Indication: ASTHMA
     Dosage: ONE INHALATION TWICE DAILY
     Route: 048
     Dates: start: 20190123
  4. DUPIXENT [Suspect]
     Active Substance: DUPILUMAB
     Dosage: 300 MG, QOW
     Route: 058
     Dates: start: 20210329, end: 20210412
  5. DUPIXENT [Suspect]
     Active Substance: DUPILUMAB
     Indication: CHRONIC RHINOSINUSITIS WITH NASAL POLYPS
     Dosage: 300 MG (2 ML), QOW
     Route: 058
     Dates: start: 20210426, end: 20210524
  6. PREDONINE [Concomitant]
     Active Substance: PREDNISOLONE
     Indication: EOSINOPHILIC OTITIS MEDIA

REACTIONS (6)
  - Asthenia [Recovering/Resolving]
  - Dysphagia [Recovering/Resolving]
  - Eosinophilia [Recovered/Resolved]
  - Cerebral infarction [Recovering/Resolving]
  - Dyslalia [Recovering/Resolving]
  - Malaise [Recovering/Resolving]

NARRATIVE: CASE EVENT DATE: 20210515
